FAERS Safety Report 10168740 (Version 6)
Quarter: 2015Q3

REPORT INFORMATION
  Report Type: Spontaneous
  Country: CA (occurrence: CA)
  Receive Date: 20140513
  Receipt Date: 20150727
  Transmission Date: 20151125
  Serious: Yes (Hospitalization, Other)
  Sender: FDA-Public Use
  Company Number: CA-ROCHE-1399683

PATIENT
  Age: 40 Year
  Sex: Female

DRUGS (11)
  1. XOLAIR [Suspect]
     Active Substance: OMALIZUMAB
     Route: 058
     Dates: start: 20120807
  2. CELEXA [Concomitant]
     Active Substance: CITALOPRAM HYDROBROMIDE
  3. HEPATITIS A VACCINE [Suspect]
     Active Substance: HEPATITIS A VIRUS STRAIN HM175 ANTIGEN (FORMALDEHYDE INACTIVATED)
     Indication: ANTIVIRAL PROPHYLAXIS
     Route: 065
  4. XOLAIR [Suspect]
     Active Substance: OMALIZUMAB
     Route: 058
     Dates: start: 20150423
  5. XOLAIR [Suspect]
     Active Substance: OMALIZUMAB
     Route: 058
     Dates: start: 20150602
  6. XOLAIR [Suspect]
     Active Substance: OMALIZUMAB
     Route: 058
     Dates: start: 20131120
  7. XOLAIR [Suspect]
     Active Substance: OMALIZUMAB
     Indication: ASTHMA
     Route: 058
     Dates: start: 20120618
  8. CETIRIZINE [Concomitant]
     Active Substance: CETIRIZINE HYDROCHLORIDE
  9. NASONEX [Concomitant]
     Active Substance: MOMETASONE FUROATE
  10. ADVAIR HFA [Concomitant]
     Active Substance: FLUTICASONE PROPIONATE\SALMETEROL XINAFOATE
  11. PATANOL [Concomitant]
     Active Substance: OLOPATADINE HYDROCHLORIDE

REACTIONS (21)
  - Sinusitis [Unknown]
  - Gait disturbance [Unknown]
  - Psychotic disorder [Unknown]
  - Bronchitis [Unknown]
  - Inflammation [Unknown]
  - Memory impairment [Unknown]
  - Hypersensitivity [Unknown]
  - Heart rate increased [Unknown]
  - Animal bite [Unknown]
  - Allergy to vaccine [Unknown]
  - Lymphangitis [Recovering/Resolving]
  - Swollen tongue [Unknown]
  - Nasal congestion [Unknown]
  - Bronchospasm [Recovered/Resolved]
  - Painful respiration [Recovering/Resolving]
  - Asthma [Unknown]
  - Pulmonary function test decreased [Unknown]
  - Malaise [Unknown]
  - Eye pain [Unknown]
  - Food allergy [Unknown]
  - Headache [Unknown]

NARRATIVE: CASE EVENT DATE: 201312
